FAERS Safety Report 6242781-0 (Version None)
Quarter: 2009Q2

REPORT INFORMATION
  Report Type: 
  Country: None (occurrence: None)
  Receive Date: 20090624
  Receipt Date: 20090612
  Transmission Date: 20091009
  Serious: Yes (Hospitalization)
  Sender: FDA-Public Use
  Company Number: US-PFIZER INC-2006032531

PATIENT
  Sex: Male
  Weight: 84 kg

DRUGS (8)
  1. SUNITINIB MALATE [Suspect]
     Indication: NEUROENDOCRINE TUMOUR
     Dosage: 50 MG, 1X/DAY
     Route: 048
     Dates: start: 20040623
  2. SUNITINIB MALATE [Suspect]
     Dosage: UNK
     Dates: start: 20060315
  3. LANOXIN [Concomitant]
     Route: 048
     Dates: start: 20030415
  4. ATENOLOL [Concomitant]
     Route: 048
     Dates: start: 20020418
  5. HYDROCHLOROTHIAZIDE [Concomitant]
     Route: 048
     Dates: start: 20040719
  6. PANCREASE [Concomitant]
     Route: 048
     Dates: start: 20020418
  7. RANITIDINE HYDROCHLORIDE [Concomitant]
     Route: 048
     Dates: start: 20040429
  8. CITRUCEL [Concomitant]
     Route: 048
     Dates: start: 20041208

REACTIONS (2)
  - CAECITIS [None]
  - GASTROINTESTINAL OBSTRUCTION [None]
